FAERS Safety Report 8889172 (Version 2)
Quarter: 2014Q2

REPORT INFORMATION
  Report Type: Report from Study
  Country: US (occurrence: US)
  Receive Date: 20121106
  Receipt Date: 20130810
  Transmission Date: 20141212
  Serious: Yes (Death, Life-Threatening, Other)
  Sender: FDA-Public Use
  Company Number: US-BAXTER-2012BAX022565

PATIENT
  Sex: 0

DRUGS (4)
  1. CYTOXAN? (CYCLOPHOSPHAMIDE FOR INJECTION, USP) [Suspect]
     Indication: LEUKAEMIA
     Route: 042
  2. CYTOXAN? (CYCLOPHOSPHAMIDE FOR INJECTION, USP) [Suspect]
     Route: 042
  3. CLOFARABINE [Suspect]
     Indication: LEUKAEMIA
     Dosage: DOSE LEVEL 1
     Route: 042
  4. CLOFARABINE [Suspect]
     Dosage: DOSE LEVEL 2
     Route: 042

REACTIONS (6)
  - Pyrexia [Unknown]
  - Tachycardia [Unknown]
  - Hypoxia [Unknown]
  - Pericardial effusion [Unknown]
  - Multi-organ failure [Unknown]
  - Death [Fatal]
